FAERS Safety Report 7077835-2 (Version None)
Quarter: 2010Q4

REPORT INFORMATION
  Report Type: 
  Country: None (occurrence: None)
  Receive Date: 20101101
  Receipt Date: 20101027
  Transmission Date: 20110411
  Serious: Yes (Death, Hospitalization, Other)
  Sender: FDA-Public Use
  Company Number: PHHY2010JP70391

PATIENT
  Sex: Female

DRUGS (6)
  1. EXJADE [Suspect]
     Indication: IRON OVERLOAD
     Dosage: 500 MG, QD
     Route: 048
     Dates: start: 20100713, end: 20100720
  2. LASIX [Suspect]
     Dosage: 20 MG, UNK
     Route: 048
     Dates: start: 20100607, end: 20100910
  3. LUPRAC [Concomitant]
     Dosage: 4 MG, UNK
     Route: 048
     Dates: start: 20100413, end: 20100910
  4. ASPARTATE POTASSIUM [Concomitant]
     Dosage: 500 G, UNK
     Route: 048
     Dates: start: 20100619, end: 20100910
  5. WARFARIN [Concomitant]
     Dosage: 2 G, UNK
     Route: 048
     Dates: start: 20100413, end: 20100910
  6. RED BLOOD CELLS [Concomitant]
     Dosage: 2 UNITS TWICE A WEEK
     Dates: end: 20100910

REACTIONS (5)
  - ASPARTATE AMINOTRANSFERASE INCREASED [None]
  - BLOOD BILIRUBIN INCREASED [None]
  - BLOOD LACTATE DEHYDROGENASE INCREASED [None]
  - CARDIAC FAILURE [None]
  - RENAL IMPAIRMENT [None]
